FAERS Safety Report 7984035-8 (Version None)
Quarter: 2011Q4

REPORT INFORMATION
  Report Type: 
  Country: None (occurrence: None)
  Receive Date: 20111216
  Receipt Date: 20111214
  Transmission Date: 20120403
  Serious: Yes (Other)
  Sender: FDA-Public Use
  Company Number: EE-PFIZER INC-2011304170

PATIENT
  Age: 38 Year
  Sex: Male
  Weight: 90 kg

DRUGS (1)
  1. ZOLOFT [Suspect]
     Indication: DEPRESSION
     Dosage: 50 MG, 1X/DAY
     Route: 048
     Dates: start: 20110101, end: 20110901

REACTIONS (4)
  - CHEST PAIN [None]
  - BALANCE DISORDER [None]
  - INSOMNIA [None]
  - DIZZINESS [None]
